FAERS Safety Report 6130218-1 (Version None)
Quarter: 2009Q1

REPORT INFORMATION
  Report Type: 
  Country: None (occurrence: None)
  Receive Date: 20090324
  Receipt Date: 20090320
  Transmission Date: 20090719
  Serious: Yes (Other)
  Sender: FDA-Public Use
  Company Number: DE-BRISTOL-MYERS SQUIBB COMPANY-14507628

PATIENT
  Age: 19 Year
  Sex: Male
  Weight: 85 kg

DRUGS (4)
  1. ABILIFY [Suspect]
     Route: 048
  2. ALCOHOL [Suspect]
     Route: 048
  3. CIPRAMIL [Suspect]
     Route: 048
  4. LANTUS [Suspect]
     Route: 058

REACTIONS (1)
  - DRUG ABUSE [None]
